FAERS Safety Report 4898535-0 (Version None)
Quarter: 2006Q1

REPORT INFORMATION
  Report Type: 
  Country: None (occurrence: None)
  Receive Date: 20060131
  Receipt Date: 20060131
  Transmission Date: 20060701
  Serious: Yes (Other)
  Sender: FDA-Public Use
  Company Number: None

PATIENT
  Age: 56 Year
  Sex: Female
  Weight: 87.9978 kg

DRUGS (1)
  1. DICLOFENAC 75 MG [Suspect]
     Indication: ARTHRITIS
     Dosage: ONE PO BID
     Route: 048

REACTIONS (2)
  - HEART RATE INCREASED [None]
  - INSOMNIA [None]
